FAERS Safety Report 10268527 (Version 1)
Quarter: 2014Q2

REPORT INFORMATION
  Report Type: Spontaneous
  Country: DE (occurrence: DE)
  Receive Date: 20140630
  Receipt Date: 20140630
  Transmission Date: 20141212
  Serious: Yes (Hospitalization)
  Sender: FDA-Public Use
  Company Number: GXKR2014DE002394

PATIENT
  Sex: 0

DRUGS (4)
  1. RAMIPRIL+HYDROCHLOROTHIAZIDE [Suspect]
     Dosage: 1-0-0
     Route: 048
     Dates: start: 2014
  2. RAMIPRIL [Suspect]
     Dosage: 0-0-1
     Route: 048
  3. AFINITOR [Suspect]
     Dosage: 5 MG, QD
     Route: 048
     Dates: start: 20140519
  4. DENOSUMAB [Concomitant]
     Dosage: 1 DF, EVERY 4 WEEKS
     Route: 042

REACTIONS (2)
  - Swollen tongue [Recovering/Resolving]
  - Oropharyngeal swelling [Recovering/Resolving]
